FAERS Safety Report 5207624-2 (Version None)
Quarter: 2007Q1

REPORT INFORMATION
  Report Type: 
  Country: None (occurrence: None)
  Receive Date: 20070112
  Receipt Date: 20070102
  Transmission Date: 20070707
  Serious: Yes (Other)
  Sender: FDA-Public Use
  Company Number: US-PFIZER INC-2006061321

PATIENT
  Sex: Female

DRUGS (6)
  1. CELEBREX [Suspect]
     Indication: ARTHRITIS
     Route: 048
  2. CELEBREX [Suspect]
     Indication: PAIN
  3. BEXTRA [Suspect]
     Indication: ARTHRITIS
     Route: 048
     Dates: start: 20041206, end: 20050505
  4. BEXTRA [Suspect]
     Indication: PAIN
  5. IBANDRONATE SODIUM [Suspect]
  6. VIOXX [Suspect]

REACTIONS (6)
  - BLINDNESS [None]
  - DEPRESSION [None]
  - INFLUENZA LIKE ILLNESS [None]
  - SKIN BURNING SENSATION [None]
  - SURGERY [None]
  - SWELLING [None]
